FAERS Safety Report 10264889 (Version 1)
Quarter: 2014Q2

REPORT INFORMATION
  Report Type: Spontaneous
  Country: FR (occurrence: FR)
  Receive Date: 20140627
  Receipt Date: 20140627
  Transmission Date: 20141212
  Serious: Yes (Hospitalization)
  Sender: FDA-Public Use
  Company Number: FR-JNJFOC-20140612344

PATIENT
  Age: 77 Year
  Sex: Male

DRUGS (13)
  1. HALDOL DECANOAS [Suspect]
     Indication: PSYCHOTIC DISORDER
     Route: 030
     Dates: start: 2011
  2. HALDOL DECANOAS [Suspect]
     Indication: PSYCHOTIC DISORDER
     Route: 030
  3. LEPTICUR [Suspect]
     Indication: TREMOR
     Route: 048
     Dates: start: 2013, end: 20140520
  4. LEPTICUR [Suspect]
     Indication: TREMOR
     Route: 048
     Dates: start: 20140603
  5. TAHOR [Suspect]
     Indication: DYSLIPIDAEMIA
     Route: 048
  6. DIAMICRON [Concomitant]
     Route: 065
  7. NOVONORM [Concomitant]
     Route: 065
  8. COVERSYL [Concomitant]
     Route: 065
  9. LANTUS [Concomitant]
     Dosage: IN EVENING
     Route: 065
  10. NOVORAPID [Concomitant]
     Route: 065
  11. UVEDOSE [Concomitant]
     Route: 065
  12. DEXERYL [Concomitant]
     Route: 065
  13. LOCOID [Concomitant]
     Dosage: ON ANKLES
     Route: 061

REACTIONS (10)
  - Urinary retention [Recovered/Resolved]
  - Renal failure [Recovered/Resolved]
  - Rhabdomyolysis [Recovered/Resolved]
  - Inflammation [Unknown]
  - Extrapyramidal disorder [Recovering/Resolving]
  - Somnolence [Unknown]
  - Hyperhidrosis [Recovering/Resolving]
  - Adenoma benign [Unknown]
  - Drug dose omission [Unknown]
  - Prostatic specific antigen increased [Unknown]
